FAERS Safety Report 5904763-5 (Version None)
Quarter: 2008Q3

REPORT INFORMATION
  Report Type: 
  Country: None (occurrence: None)
  Receive Date: 20080909
  Receipt Date: 20080414
  Transmission Date: 20090109
  Serious: Yes (Disabling)
  Sender: FDA-Public Use
  Company Number: 163-20785-08041032

PATIENT
  Age: 76 Year
  Sex: Male

DRUGS (7)
  1. THALOMID [Suspect]
     Indication: MULTIPLE MYELOMA
     Dosage: 200 MG, BID, ORAL
     Route: 048
     Dates: start: 20070110, end: 20071120
  2. NEXIUM [Concomitant]
  3. VICODIN [Concomitant]
  4. DECADRON [Concomitant]
  5. AMBIEN [Concomitant]
  6. XANAX [Concomitant]
  7. ASPIRIN [Concomitant]

REACTIONS (1)
  - NEUROPATHY PERIPHERAL [None]
